FAERS Safety Report 21439009 (Version 1)
Quarter: 2022Q4

REPORT INFORMATION
  Report Type: Spontaneous
  Country: NP (occurrence: NP)
  Receive Date: 20221011
  Receipt Date: 20221011
  Transmission Date: 20230112
  Serious: Yes (Other)
  Sender: FDA-Public Use
  Company Number: NP-MLMSERVICE-20220928-3821058-2

PATIENT
  Age: 41 Year
  Sex: Male

DRUGS (10)
  1. TACROLIMUS [Suspect]
     Active Substance: TACROLIMUS
     Indication: Immunosuppressant drug therapy
     Dates: start: 20191111
  2. BASILIXIMAB [Concomitant]
     Active Substance: BASILIXIMAB
     Dates: start: 20191116
  3. ABACAVIR [Concomitant]
     Active Substance: ABACAVIR
     Indication: HIV infection
     Dates: start: 2015
  4. MYCOPHENOLATE MOFETIL [Concomitant]
     Active Substance: MYCOPHENOLATE MOFETIL
     Indication: Immunosuppressant drug therapy
     Dates: start: 20191111
  5. PREDNISOLONE [Concomitant]
     Active Substance: PREDNISOLONE
     Dates: start: 20191114, end: 20191213
  6. DOLUTEGRAVIR [Concomitant]
     Active Substance: DOLUTEGRAVIR
     Indication: HIV infection
     Dates: start: 2015
  7. LAMIVUDINE [Concomitant]
     Active Substance: LAMIVUDINE
     Indication: HIV infection
     Dates: start: 2015
  8. METHYLPREDNISOLONE [Concomitant]
     Active Substance: METHYLPREDNISOLONE
     Indication: Immunosuppressant drug therapy
     Route: 042
     Dates: start: 20191113
  9. BASILIXIMAB [Concomitant]
     Active Substance: BASILIXIMAB
     Dates: start: 20191113
  10. PREDNISOLONE [Concomitant]
     Active Substance: PREDNISOLONE
     Dosage: DOSE TAPERED
     Dates: start: 20191214

REACTIONS (2)
  - Immunosuppressant drug level increased [Recovered/Resolved]
  - Renal tubular injury [Recovered/Resolved]

NARRATIVE: CASE EVENT DATE: 20200101
